FAERS Safety Report 17010392 (Version 1)
Quarter: 2019Q4

REPORT INFORMATION
  Report Type: Report from Study
  Country: US (occurrence: US)
  Receive Date: 20191108
  Receipt Date: 20191108
  Transmission Date: 20200122
  Serious: Yes (Death)
  Sender: FDA-Public Use
  Company Number: US-ASTRAZENECA-2019SF58895

PATIENT
  Age: 23586 Day
  Sex: Female

DRUGS (1)
  1. FASLODEX [Suspect]
     Active Substance: FULVESTRANT
     Dosage: ONCE
     Route: 030
     Dates: start: 20190827

REACTIONS (1)
  - Death [Fatal]

NARRATIVE: CASE EVENT DATE: 20190914
